FAERS Safety Report 10072588 (Version 2)
Quarter: 2014Q2

REPORT INFORMATION
  Report Type: Spontaneous
  Country: US (occurrence: US)
  Receive Date: 20140411
  Receipt Date: 20140505
  Transmission Date: 20141212
  Serious: Yes (Other)
  Sender: FDA-Public Use
  Company Number: US-SA-2014SA042285

PATIENT
  Age: 76 Year
  Sex: Male
  Weight: 97.5 kg

DRUGS (6)
  1. MULTAQ [Suspect]
     Indication: ATRIAL FIBRILLATION
     Route: 048
     Dates: start: 20140321, end: 20140401
  2. DILTIAZEM [Concomitant]
     Indication: BLOOD PRESSURE
     Dates: start: 2013
  3. DILTIAZEM [Concomitant]
     Indication: HEART RATE
     Dates: start: 2013
  4. CARVEDILOL [Concomitant]
     Indication: BLOOD PRESSURE
     Dates: start: 2010
  5. CARVEDILOL [Concomitant]
     Indication: ATRIAL FIBRILLATION
     Dates: start: 2010
  6. LISINOPRIL [Concomitant]
     Indication: BLOOD PRESSURE
     Dates: start: 2010

REACTIONS (1)
  - Atrial fibrillation [Not Recovered/Not Resolved]
